FAERS Safety Report 15599856 (Version 1)
Quarter: 2018Q4

REPORT INFORMATION
  Report Type: Spontaneous
  Country: CN (occurrence: CN)
  Receive Date: 20181108
  Receipt Date: 20181108
  Transmission Date: 20190205
  Serious: Yes (Life-Threatening, Other)
  Sender: FDA-Public Use
  Company Number: CN-BAXTER-2018BAX027209

PATIENT
  Age: 32 Year
  Sex: Male
  Weight: 70 kg

DRUGS (3)
  1. 20% MANNITOL INJECTION [Suspect]
     Active Substance: MANNITOL
     Indication: ARTHRITIS
  2. GLUCOSE [Suspect]
     Active Substance: DEXTROSE
     Indication: ADVERSE EVENT
     Dosage: 3 VIALS
     Route: 065
     Dates: start: 20180827
  3. 20% MANNITOL INJECTION [Suspect]
     Active Substance: MANNITOL
     Indication: GOUT
     Dosage: IV GTT, QD
     Route: 041
     Dates: start: 20180827, end: 20180827

REACTIONS (7)
  - Gaze palsy [Recovering/Resolving]
  - Unresponsive to stimuli [Recovering/Resolving]
  - Dizziness [Recovering/Resolving]
  - Vomiting [Recovering/Resolving]
  - Syncope [Recovering/Resolving]
  - Hyperhidrosis [Recovering/Resolving]
  - Nausea [Recovering/Resolving]

NARRATIVE: CASE EVENT DATE: 20180827
